FAERS Safety Report 25933293 (Version 1)
Quarter: 2025Q4

REPORT INFORMATION
  Report Type: Report from Study
  Country: EU (occurrence: EU)
  Receive Date: 20251017
  Receipt Date: 20251017
  Transmission Date: 20260118
  Serious: Yes (Other)
  Sender: ACCORD
  Company Number: EU-Accord-508786

PATIENT
  Age: 46 Year
  Sex: Female

DRUGS (4)
  1. TEMOZOLOMIDE [Suspect]
     Active Substance: TEMOZOLOMIDE
     Indication: Pituitary tumour
     Dosage: FOR 5 DAYS EVERY 28 DAYS??5 CYCLE
     Route: 048
     Dates: start: 202006, end: 202101
  2. PASIREOTIDE [Concomitant]
     Active Substance: PASIREOTIDE
     Indication: Pituitary tumour
     Dates: start: 202006, end: 202101
  3. TEMOZOLOMIDE [Suspect]
     Active Substance: TEMOZOLOMIDE
     Indication: Neuroendocrine tumour
     Dosage: FOR 5 DAYS EVERY 28 DAYS??5 CYCLE
     Route: 048
     Dates: start: 202006
  4. PASIREOTIDE [Concomitant]
     Active Substance: PASIREOTIDE
     Indication: Neuroendocrine tumour

REACTIONS (3)
  - Bone marrow failure [Unknown]
  - Neutropenia [Unknown]
  - Off label use [Unknown]
